FAERS Safety Report 25931074 (Version 2)
Quarter: 2025Q4

REPORT INFORMATION
  Report Type: Spontaneous
  Country: US (occurrence: US)
  Receive Date: 20251016
  Receipt Date: 20251208
  Transmission Date: 20260117
  Serious: No
  Sender: SANOFI AVENTIS
  Company Number: US-SA-2025SA308467

PATIENT
  Sex: Female
  Weight: 83.64 kg

DRUGS (7)
  1. DUPIXENT [Suspect]
     Active Substance: DUPILUMAB
     Indication: Mechanical urticaria
     Dosage: 300 MG, QOW
     Route: 058
  2. DUPIXENT [Suspect]
     Active Substance: DUPILUMAB
     Indication: Urticaria
  3. ALBUTEROL SULFATE [Concomitant]
     Active Substance: ALBUTEROL SULFATE
  4. FAMOTIDINE [Concomitant]
     Active Substance: FAMOTIDINE
  5. EPINEPHRINE [Concomitant]
     Active Substance: EPINEPHRINE
  6. ASPIRIN [Concomitant]
     Active Substance: ASPIRIN
     Dosage: UNK
  7. FEXOFENADINE HYDROCHLORIDE [Concomitant]
     Active Substance: FEXOFENADINE HYDROCHLORIDE
     Dosage: UNK

REACTIONS (7)
  - Injection site pain [Not Recovered/Not Resolved]
  - Product preparation error [Unknown]
  - Anxiety [Not Recovered/Not Resolved]
  - Eyelids pruritus [Unknown]
  - Pruritus [Unknown]
  - Urticaria [Unknown]
  - Drug ineffective for unapproved indication [Unknown]
